FAERS Safety Report 9366566 (Version 2)
Quarter: 2013Q3

REPORT INFORMATION
  Report Type: Spontaneous
  Country: US (occurrence: US)
  Receive Date: 20130625
  Receipt Date: 20130712
  Transmission Date: 20140515
  Serious: Yes (Death)
  Sender: FDA-Public Use
  Company Number: US-GILEAD-2013-0077611

PATIENT
  Age: 70 Year
  Sex: Male

DRUGS (3)
  1. LETAIRIS [Suspect]
     Indication: PULMONARY HYPERTENSION
     Dosage: 5 MG, QD
     Route: 048
     Dates: start: 20130529
  2. LETAIRIS [Suspect]
     Indication: ECHOCARDIOGRAM ABNORMAL
  3. REVATIO [Concomitant]

REACTIONS (1)
  - Death [Fatal]
